FAERS Safety Report 10218269 (Version 1)
Quarter: 2014Q2

REPORT INFORMATION
  Report Type: Spontaneous
  Country: CA (occurrence: CA)
  Receive Date: 20140605
  Receipt Date: 20140605
  Transmission Date: 20141212
  Serious: Yes (Hospitalization)
  Sender: FDA-Public Use
  Company Number: CA-ROCHE-1412831

PATIENT
  Age: 58 Year
  Sex: Male

DRUGS (4)
  1. PEGASYS [Suspect]
     Indication: PRODUCT USED FOR UNKNOWN INDICATION
     Route: 058
  2. PEGASYS [Suspect]
     Route: 048
  3. RIBAVIRIN [Suspect]
     Indication: PRODUCT USED FOR UNKNOWN INDICATION
     Route: 048
  4. INCIVEK [Suspect]
     Indication: PRODUCT USED FOR UNKNOWN INDICATION
     Route: 048

REACTIONS (5)
  - Contusion [Unknown]
  - Generalised oedema [Unknown]
  - Loss of consciousness [Unknown]
  - Pneumonia [Unknown]
  - Renal disorder [Unknown]
